FAERS Safety Report 13408138 (Version 1)
Quarter: 2017Q2

REPORT INFORMATION
  Report Type: Spontaneous
  Country: US (occurrence: US)
  Receive Date: 20170406
  Receipt Date: 20170406
  Transmission Date: 20170830
  Serious: No
  Sender: FDA-Public Use
  Company Number: US-GLENMARK PHARMACEUTICALS-2017GMK025840

PATIENT

DRUGS (3)
  1. EZETIMIBE. [Suspect]
     Active Substance: EZETIMIBE
     Indication: LOW DENSITY LIPOPROTEIN DECREASED
     Dosage: 1 DF, QD
     Route: 048
     Dates: start: 20161222
  2. COUMADIN [Concomitant]
     Active Substance: WARFARIN SODIUM
     Indication: CARDIAC DISORDER
     Dosage: 1 DF, QD
     Route: 048
  3. DIOVAN [Concomitant]
     Active Substance: VALSARTAN
     Indication: BLOOD PRESSURE MEASUREMENT
     Dosage: 40 MG, QD
     Route: 048

REACTIONS (5)
  - Speech disorder [Not Recovered/Not Resolved]
  - Upper-airway cough syndrome [Not Recovered/Not Resolved]
  - Malaise [Not Recovered/Not Resolved]
  - Viral upper respiratory tract infection [Not Recovered/Not Resolved]
  - Nausea [Not Recovered/Not Resolved]
